FAERS Safety Report 10146557 (Version 1)
Quarter: 2014Q2

REPORT INFORMATION
  Report Type: Spontaneous
  Country: US (occurrence: US)
  Receive Date: 20140501
  Receipt Date: 20140501
  Transmission Date: 20141212
  Serious: Yes (Hospitalization, Other)
  Sender: FDA-Public Use
  Company Number: US-ASTELLAS-2014US004374

PATIENT
  Age: 79 Year
  Sex: Female

DRUGS (3)
  1. TARCEVA [Suspect]
     Indication: NON-SMALL CELL LUNG CANCER
     Dosage: 100 MG, ONCE DAILY, 2 HOURS AFTER EATING IN THE EVENING
     Route: 048
     Dates: start: 20140331, end: 20140412
  2. LEVOTHYROXIN [Concomitant]
     Indication: THYROID DISORDER
     Dosage: UNK UNK, UNKNOWN FREQ.
     Route: 065
  3. OXYGEN [Concomitant]
     Indication: PRODUCT USED FOR UNKNOWN INDICATION
     Dosage: UNK UNK, UNKNOWN FREQ.
     Route: 065

REACTIONS (11)
  - Ill-defined disorder [Unknown]
  - Dyspnoea [Unknown]
  - Dyspnoea [Unknown]
  - Malaise [Unknown]
  - Constipation [Unknown]
  - Dizziness [Unknown]
  - Disorientation [Unknown]
  - Heart rate increased [Unknown]
  - Fatigue [Unknown]
  - Asthenia [Unknown]
  - Nausea [Unknown]
